FAERS Safety Report 22207551 (Version 1)
Quarter: 2023Q2

REPORT INFORMATION
  Report Type: Spontaneous
  Country: CA (occurrence: CA)
  Receive Date: 20230413
  Receipt Date: 20230413
  Transmission Date: 20230721
  Serious: Yes (Hospitalization, Other)
  Sender: FDA-Public Use
  Company Number: CA-FreseniusKabi-FK202304576

PATIENT
  Age: 75 Year
  Sex: Male
  Weight: 93 kg

DRUGS (45)
  1. DIPHENHYDRAMINE HYDROCHLORIDE [Suspect]
     Active Substance: DIPHENHYDRAMINE HYDROCHLORIDE
     Indication: Product used for unknown indication
     Route: 065
  2. REPLAGAL [Suspect]
     Active Substance: AGALSIDASE ALFA
     Indication: Fabry^s disease
     Dosage: CONCENTRATE FOR SOLUTION FOR INFUSION
     Route: 050
  3. REPLAGAL [Suspect]
     Active Substance: AGALSIDASE ALFA
     Dosage: SOLUTION INTRAVENOUS
     Route: 065
  4. REPLAGAL [Suspect]
     Active Substance: AGALSIDASE ALFA
     Dosage: CONCENTRATE FOR SOLUTION FOR INFUSION
     Route: 065
  5. REPLAGAL [Suspect]
     Active Substance: AGALSIDASE ALFA
     Dosage: CONCENTRATE FOR SOLUTION FOR INFUSION
     Route: 050
  6. REPLAGAL [Suspect]
     Active Substance: AGALSIDASE ALFA
     Dosage: CONCENTRATE FOR SOLUTION FOR INFUSION
     Route: 042
  7. REPLAGAL [Suspect]
     Active Substance: AGALSIDASE ALFA
     Dosage: CONCENTRATE FOR SOLUTION FOR INFUSION
     Route: 050
  8. REPLAGAL [Suspect]
     Active Substance: AGALSIDASE ALFA
     Dosage: CONCENTRATE FOR SOLUTION FOR INFUSION
     Route: 065
  9. REPLAGAL [Suspect]
     Active Substance: AGALSIDASE ALFA
     Dosage: CONCENTRATE FOR SOLUTION FOR INFUSION
     Route: 065
  10. REPLAGAL [Suspect]
     Active Substance: AGALSIDASE ALFA
     Dosage: CONCENTRATE FOR SOLUTION FOR INFUSION
     Route: 065
  11. REPLAGAL [Suspect]
     Active Substance: AGALSIDASE ALFA
     Dosage: CONCENTRATE FOR SOLUTION FOR INFUSION
     Route: 065
  12. REPLAGAL [Suspect]
     Active Substance: AGALSIDASE ALFA
     Dosage: CONCENTRATE FOR SOLUTION FOR INFUSION
     Route: 065
  13. REPLAGAL [Suspect]
     Active Substance: AGALSIDASE ALFA
     Dosage: CONCENTRATE FOR SOLUTION FOR INFUSION
     Route: 065
  14. REPLAGAL [Suspect]
     Active Substance: AGALSIDASE ALFA
     Dosage: CONCENTRATE FOR SOLUTION FOR INFUSION
     Route: 065
  15. REPLAGAL [Suspect]
     Active Substance: AGALSIDASE ALFA
     Dosage: CONCENTRATE FOR SOLUTION FOR INFUSION
     Route: 065
  16. REPLAGAL [Suspect]
     Active Substance: AGALSIDASE ALFA
     Dosage: CONCENTRATE FOR SOLUTION FOR INFUSION
     Route: 065
  17. REPLAGAL [Suspect]
     Active Substance: AGALSIDASE ALFA
     Dosage: CONCENTRATE FOR SOLUTION FOR INFUSION
     Route: 065
  18. REPLAGAL [Suspect]
     Active Substance: AGALSIDASE ALFA
     Dosage: CONCENTRATE FOR SOLUTION FOR INFUSION
     Route: 065
  19. VITAMIN D [Concomitant]
     Active Substance: VITAMIN D NOS
     Indication: Product used for unknown indication
     Route: 065
  20. RAMIPRIL [Concomitant]
     Active Substance: RAMIPRIL
     Indication: Product used for unknown indication
     Dosage: NOT SPECIFIED
     Route: 065
  21. GABAPENTIN [Concomitant]
     Active Substance: GABAPENTIN
     Indication: Product used for unknown indication
     Dosage: NOT SPECIFIED
     Route: 065
  22. DIPHENHYDRAMINE [Concomitant]
     Active Substance: DIPHENHYDRAMINE
     Indication: Product used for unknown indication
     Route: 065
  23. ACETAMINOPHEN [Concomitant]
     Active Substance: ACETAMINOPHEN
     Indication: Product used for unknown indication
     Route: 065
  24. ACETAMINOPHEN [Concomitant]
     Active Substance: ACETAMINOPHEN
     Route: 065
  25. CHOLECALCIFEROL [Concomitant]
     Active Substance: CHOLECALCIFEROL
     Indication: Product used for unknown indication
     Dosage: NOT SPECIFIED?1000.0 IU(INTERNATIONAL UNIT)
     Route: 065
  26. APIXABAN [Concomitant]
     Active Substance: APIXABAN
     Indication: Product used for unknown indication
     Route: 065
  27. CANDESARTAN [Concomitant]
     Active Substance: CANDESARTAN
     Indication: Product used for unknown indication
     Route: 065
  28. CHLORPHENIRAMINE MALEATE [Concomitant]
     Active Substance: CHLORPHENIRAMINE MALEATE
     Indication: Product used for unknown indication
     Route: 065
  29. CHLORPHENIRAMINE MALEATE [Concomitant]
     Active Substance: CHLORPHENIRAMINE MALEATE
     Dosage: LIQUID INTRAVENOUS
  30. EZETIMIBE [Concomitant]
     Active Substance: EZETIMIBE
     Indication: Product used for unknown indication
     Route: 065
  31. EZETIMIBE [Concomitant]
     Active Substance: EZETIMIBE
     Indication: Product used for unknown indication
     Route: 065
  32. FERROUS GLUCONATE [Concomitant]
     Active Substance: FERROUS GLUCONATE
     Indication: Product used for unknown indication
     Dosage: 300 MG
     Route: 065
  33. GLYBURIDE [Concomitant]
     Active Substance: GLYBURIDE
     Indication: Product used for unknown indication
     Route: 065
  34. IRON [Concomitant]
     Active Substance: IRON
     Indication: Product used for unknown indication
     Route: 065
  35. LASIX [Concomitant]
     Active Substance: FUROSEMIDE
     Indication: Product used for unknown indication
     Route: 065
  36. LIPITOR [Concomitant]
     Active Substance: ATORVASTATIN CALCIUM
     Indication: Product used for unknown indication
     Dosage: NOT SPECIFIED
     Route: 065
  37. METOPROLOL [Concomitant]
     Active Substance: METOPROLOL
     Indication: Heart rate
     Route: 065
  38. METOPROLOL [Concomitant]
     Active Substance: METOPROLOL
     Indication: Atrial fibrillation
  39. PANTOPRAZOLE SODIUM [Concomitant]
     Active Substance: PANTOPRAZOLE SODIUM
     Indication: Product used for unknown indication
     Route: 065
  40. HERBALS\PLANTAGO OVATA LEAF [Concomitant]
     Active Substance: HERBALS\PLANTAGO OVATA LEAF
     Indication: Product used for unknown indication
     Route: 065
  41. HERBALS\PLANTAGO OVATA LEAF [Concomitant]
     Active Substance: HERBALS\PLANTAGO OVATA LEAF
     Route: 065
  42. SOTALOL [Concomitant]
     Active Substance: SOTALOL
     Indication: Product used for unknown indication
     Route: 065
  43. DULOXETINE [Concomitant]
     Active Substance: DULOXETINE
     Indication: Product used for unknown indication
     Dosage: NOT SPECIFIED
     Route: 065
  44. VENTOLIN [Concomitant]
     Active Substance: ALBUTEROL SULFATE
     Indication: Product used for unknown indication
     Route: 065
  45. XARELTO [Concomitant]
     Active Substance: RIVAROXABAN
     Indication: Product used for unknown indication

REACTIONS (26)
  - Blood pressure fluctuation [Not Recovered/Not Resolved]
  - Atrial fibrillation [Not Recovered/Not Resolved]
  - Blood pressure increased [Not Recovered/Not Resolved]
  - Body temperature decreased [Not Recovered/Not Resolved]
  - Cardiac disorder [Not Recovered/Not Resolved]
  - Cough [Not Recovered/Not Resolved]
  - Fasting [Not Recovered/Not Resolved]
  - Gastroenteritis viral [Not Recovered/Not Resolved]
  - Infusion related reaction [Not Recovered/Not Resolved]
  - Infusion site extravasation [Not Recovered/Not Resolved]
  - Medication error [Not Recovered/Not Resolved]
  - Nasopharyngitis [Not Recovered/Not Resolved]
  - Pallor [Not Recovered/Not Resolved]
  - Poor venous access [Not Recovered/Not Resolved]
  - Product dose omission issue [Not Recovered/Not Resolved]
  - Radial pulse abnormal [Not Recovered/Not Resolved]
  - Skin discolouration [Not Recovered/Not Resolved]
  - Type 2 diabetes mellitus [Not Recovered/Not Resolved]
  - Weight increased [Not Recovered/Not Resolved]
  - Dry skin [Not Recovered/Not Resolved]
  - Epistaxis [Not Recovered/Not Resolved]
  - Constipation [Not Recovered/Not Resolved]
  - Fatigue [Not Recovered/Not Resolved]
  - Hypotension [Not Recovered/Not Resolved]
  - Nasal congestion [Not Recovered/Not Resolved]
  - Malaise [Not Recovered/Not Resolved]
